FAERS Safety Report 5883941-8 (Version None)
Quarter: 2008Q3

REPORT INFORMATION
  Report Type: 
  Country: None (occurrence: None)
  Receive Date: 20080915
  Receipt Date: 20080909
  Transmission Date: 20090109
  Serious: Yes (Life-Threatening, Hospitalization, Other)
  Sender: FDA-Public Use
  Company Number: B0535876A

PATIENT
  Age: 8 Year
  Sex: Male

DRUGS (6)
  1. COMBIVIR [Suspect]
     Indication: HIV INFECTION
     Route: 048
     Dates: start: 20080522, end: 20080903
  2. ABACAVIR [Suspect]
     Indication: HIV INFECTION
     Route: 048
     Dates: start: 20080522
  3. EFAVIRENZ [Suspect]
     Indication: HIV INFECTION
     Dosage: 300MG PER DAY
     Route: 048
     Dates: start: 20080522
  4. COTRIMOXAZOLE [Concomitant]
     Dates: start: 20080619
  5. MULTI-VITAMINS [Concomitant]
  6. LAMIVUDINE [Concomitant]
     Indication: HIV INFECTION

REACTIONS (11)
  - ABDOMINAL TENDERNESS [None]
  - ANAEMIA [None]
  - ASTHENIA [None]
  - CARDIAC FAILURE CONGESTIVE [None]
  - CARDIAC MURMUR [None]
  - DRUG TOXICITY [None]
  - GALLOP RHYTHM PRESENT [None]
  - OEDEMA PERIPHERAL [None]
  - PALLOR [None]
  - PITTING OEDEMA [None]
  - TACHYCARDIA [None]
